FAERS Safety Report 15170749 (Version 1)
Quarter: 2018Q3

REPORT INFORMATION
  Report Type: Report from Study
  Country: None (occurrence: BR)
  Receive Date: 20180720
  Receipt Date: 20180720
  Transmission Date: 20181010
  Serious: Yes (Death, Hospitalization, Other)
  Sender: FDA-Public Use
  Company Number: BR-ABBVIE-11P-020-0700887-00

PATIENT
  Age: 42 Year
  Sex: Female
  Weight: 46 kg

DRUGS (10)
  1. HUMIRA [Suspect]
     Active Substance: ADALIMUMAB
     Indication: RHEUMATOID ARTHRITIS
     Route: 058
     Dates: start: 20090510, end: 20110206
  2. METHOTREXATE. [Suspect]
     Active Substance: METHOTREXATE
     Indication: RHEUMATOID ARTHRITIS
     Route: 048
  3. MICROVLAR [Concomitant]
     Active Substance: ETHINYL ESTRADIOL\LEVONORGESTREL
     Indication: CONTRACEPTION
     Dosage: 28 TABLETS A MONTH
     Route: 048
  4. HUMIRA [Suspect]
     Active Substance: ADALIMUMAB
     Route: 058
  5. PREDNISONE. [Concomitant]
     Active Substance: PREDNISONE
     Indication: ARTHRALGIA
     Route: 048
     Dates: start: 2008
  6. PARACETAMOL [Concomitant]
     Active Substance: ACETAMINOPHEN
     Indication: PAIN
     Route: 048
     Dates: start: 2009
  7. FOLIC ACID. [Concomitant]
     Active Substance: FOLIC ACID
     Indication: RHEUMATOID ARTHRITIS
     Route: 048
     Dates: start: 201602
  8. METHOTREXATE. [Concomitant]
     Active Substance: METHOTREXATE
     Indication: PRODUCT USED FOR UNKNOWN INDICATION
     Route: 048
     Dates: start: 201407
  9. HUMIRA [Suspect]
     Active Substance: ADALIMUMAB
     Route: 058
     Dates: start: 20110912
  10. DICLOFENAC [Concomitant]
     Active Substance: DICLOFENAC
     Indication: PAIN
     Route: 048

REACTIONS (17)
  - Lung disorder [Fatal]
  - Vomiting [Unknown]
  - Nosocomial infection [Not Recovered/Not Resolved]
  - Headache [Unknown]
  - Blood pressure fluctuation [Recovering/Resolving]
  - Lung disorder [Recovered/Resolved]
  - Arthritis [Unknown]
  - Pulmonary mycosis [Not Recovered/Not Resolved]
  - Pneumonia [Not Recovered/Not Resolved]
  - Dyspnoea [Fatal]
  - Disseminated tuberculosis [Unknown]
  - Pneumonia [Recovered/Resolved]
  - Gastric disorder [Unknown]
  - Hypertension [Recovering/Resolving]
  - Back pain [Recovering/Resolving]
  - Pulmonary tuberculosis [Not Recovered/Not Resolved]
  - Pain in extremity [Unknown]

NARRATIVE: CASE EVENT DATE: 201010
